FAERS Safety Report 20093056 (Version 1)
Quarter: 2021Q4

REPORT INFORMATION
  Report Type: Spontaneous
  Country: FR (occurrence: FR)
  Receive Date: 20211120
  Receipt Date: 20211120
  Transmission Date: 20220303
  Serious: Yes (Hospitalization, Congenital Anomaly, Other)
  Sender: FDA-Public Use
  Company Number: FR-ABBVIE-21K-056-4164210-00

PATIENT
  Sex: Female

DRUGS (1)
  1. VALPROATE SODIUM [Suspect]
     Active Substance: VALPROATE SODIUM
     Indication: Maternal exposure timing unspecified
     Route: 064

REACTIONS (63)
  - Retrognathia [Unknown]
  - Cleft palate [Unknown]
  - Pulmonary valve stenosis [Unknown]
  - Pulmonary calcification [Unknown]
  - Fistula [Recovered/Resolved]
  - Gait disturbance [Unknown]
  - Developmental delay [Unknown]
  - Dysplasia [Unknown]
  - Arthropathy [Unknown]
  - Gait disturbance [Unknown]
  - Microcephaly [Unknown]
  - Talipes [Unknown]
  - Ligament laxity [Unknown]
  - Deafness bilateral [Unknown]
  - Encephalopathy [Unknown]
  - Grey matter heterotopia [Unknown]
  - Fine motor skill dysfunction [Unknown]
  - Ataxia [Unknown]
  - Gait disturbance [Unknown]
  - Foot deformity [Unknown]
  - Osteotomy [Unknown]
  - Osteotomy [Unknown]
  - Muscle atrophy [Unknown]
  - Fall [Unknown]
  - Femur fracture [Unknown]
  - Extensor plantar response [Unknown]
  - Speech disorder developmental [Unknown]
  - Disability [Unknown]
  - Psychomotor skills impaired [Unknown]
  - Psychomotor retardation [Unknown]
  - Skin depigmentation [Unknown]
  - Hypomelanosis of Ito [Unknown]
  - Pulmonary valve stenosis [Unknown]
  - Developmental hip dysplasia [Unknown]
  - Hypertelorism [Unknown]
  - Tooth malformation [Unknown]
  - Amyotrophy [Unknown]
  - Muscular weakness [Unknown]
  - Cognitive disorder [Unknown]
  - Cytogenetic abnormality [Unknown]
  - Sinusitis [Unknown]
  - Scoliosis [Unknown]
  - Lordosis [Unknown]
  - Arthropathy [Unknown]
  - Scoliosis [Unknown]
  - Spinal deformity [Unknown]
  - Nerve stimulation test abnormal [Unknown]
  - Corpus callosotomy [Unknown]
  - Dysmorphism [Unknown]
  - Malpositioned teeth [Unknown]
  - Foetal malformation [Unknown]
  - Bone graft removal [Unknown]
  - Dysphagia [Unknown]
  - Ear, nose and throat infection [Unknown]
  - Hyperreflexia [Unknown]
  - Hypotonia [Unknown]
  - Language disorder [Unknown]
  - Intelligence test abnormal [Unknown]
  - Strabismus [Unknown]
  - Partial seizures [Unknown]
  - Oedema [Unknown]
  - Echolalia [Unknown]
  - Foetal exposure during pregnancy [Unknown]

NARRATIVE: CASE EVENT DATE: 19940901
